FAERS Safety Report 23677412 (Version 1)
Quarter: 2024Q1

REPORT INFORMATION
  Report Type: Spontaneous
  Country: CA (occurrence: CA)
  Receive Date: 20240327
  Receipt Date: 20240327
  Transmission Date: 20240409
  Serious: Yes (Other)
  Sender: FDA-Public Use
  Company Number: CA-STRIDES ARCOLAB LIMITED-2024SP003550

PATIENT
  Age: 68 Year
  Sex: Female

DRUGS (3)
  1. BUSPIRONE HYDROCHLORIDE [Suspect]
     Active Substance: BUSPIRONE HYDROCHLORIDE
     Indication: Depression
     Dosage: 5 MILLIGRAM, TID
     Route: 065
  2. CITALOPRAM [Suspect]
     Active Substance: CITALOPRAM\CITALOPRAM HYDROBROMIDE
     Indication: Depression
     Dosage: 40 MILLIGRAM, TID
     Route: 065
  3. NABILONE [Suspect]
     Active Substance: NABILONE
     Indication: Depression
     Dosage: 0.5 MILLIGRAM, PER DAY; EVERY NIGHT AT BED TIME
     Route: 065

REACTIONS (1)
  - Drug resistance [Unknown]
